FAERS Safety Report 18158779 (Version 5)
Quarter: 2022Q3

REPORT INFORMATION
  Report Type: Spontaneous
  Country: US (occurrence: US)
  Receive Date: 20200817
  Receipt Date: 20220916
  Transmission Date: 20221027
  Serious: Yes (Other)
  Sender: FDA-Public Use
  Company Number: US-GILEAD-2020-0489748

PATIENT
  Sex: Male
  Weight: 74.83 kg

DRUGS (57)
  1. VIREAD [Suspect]
     Active Substance: TENOFOVIR DISOPROXIL FUMARATE
     Indication: HIV infection
     Dosage: UNK
     Route: 048
     Dates: start: 2006
  2. VIREAD [Suspect]
     Active Substance: TENOFOVIR DISOPROXIL FUMARATE
     Dosage: UNK
     Route: 048
     Dates: start: 200802, end: 2009
  3. VIREAD [Suspect]
     Active Substance: TENOFOVIR DISOPROXIL FUMARATE
     Dosage: UNK
     Route: 048
     Dates: start: 200502, end: 200804
  4. ATRIPLA [Suspect]
     Active Substance: EFAVIRENZ\EMTRICITABINE\TENOFOVIR DISOPROXIL FUMARATE
     Indication: HIV infection
     Dosage: UNK
     Route: 065
     Dates: start: 200607, end: 200801
  5. TRUVADA [Suspect]
     Active Substance: EMTRICITABINE\TENOFOVIR DISOPROXIL FUMARATE
     Indication: HIV infection
     Dosage: UNK
     Route: 048
     Dates: start: 20100702, end: 20161026
  6. TRUVADA [Suspect]
     Active Substance: EMTRICITABINE\TENOFOVIR DISOPROXIL FUMARATE
     Dosage: UNK
     Route: 048
     Dates: start: 2009, end: 2017
  7. TRUVADA [Suspect]
     Active Substance: EMTRICITABINE\TENOFOVIR DISOPROXIL FUMARATE
     Dosage: UNK
     Route: 048
     Dates: start: 200910, end: 201609
  8. BIKTARVY [Concomitant]
     Active Substance: BICTEGRAVIR SODIUM\EMTRICITABINE\TENOFOVIR ALAFENAMIDE FUMARATE
  9. DESCOVY [Concomitant]
     Active Substance: EMTRICITABINE\TENOFOVIR ALAFENAMIDE FUMARATE
  10. ISENTRESS [Concomitant]
     Active Substance: RALTEGRAVIR POTASSIUM
  11. KALETRA [Concomitant]
     Active Substance: LOPINAVIR\RITONAVIR
  12. NORVIR [Concomitant]
     Active Substance: RITONAVIR
  13. PREZISTA [Concomitant]
     Active Substance: DARUNAVIR ETHANOLATE
  14. REYATAZ [Concomitant]
     Active Substance: ATAZANAVIR SULFATE
  15. TIVICAY [Concomitant]
     Active Substance: DOLUTEGRAVIR SODIUM
  16. TRIZIVIR [Concomitant]
     Active Substance: ABACAVIR SULFATE\LAMIVUDINE\ZIDOVUDINE
  17. VIDEX [Concomitant]
     Active Substance: DIDANOSINE
  18. ZIAGEN [Concomitant]
     Active Substance: ABACAVIR SULFATE
  19. ATORVASTATIN [Concomitant]
     Active Substance: ATORVASTATIN
  20. AZITHROMYCIN [Concomitant]
     Active Substance: AZITHROMYCIN
  21. CHANTIX [Concomitant]
     Active Substance: VARENICLINE TARTRATE
  22. CIPROFLOXACIN [Concomitant]
     Active Substance: CIPROFLOXACIN
  23. CLINDAMYCIN [Concomitant]
     Active Substance: CLINDAMYCIN
  24. CORTISONE [Concomitant]
     Active Substance: CORTISONE
  25. CYCLOBENZAPRINE [Concomitant]
     Active Substance: CYCLOBENZAPRINE
  26. DAPSONE [Concomitant]
     Active Substance: DAPSONE
  27. DOCUSATE SODIUM [Concomitant]
     Active Substance: DOCUSATE SODIUM
  28. DOXYCYCLINE [Concomitant]
     Active Substance: DOXYCYCLINE
  29. FLAGYL [METRONIDAZOLE;NYSTATIN] [Concomitant]
  30. FLUCONAZOLE [Concomitant]
     Active Substance: FLUCONAZOLE
  31. FUROSEMIDE [Concomitant]
     Active Substance: FUROSEMIDE
  32. GABAPENTIN [Concomitant]
     Active Substance: GABAPENTIN
  33. HYDROCODONE BITARTRATE AND ACETAMINOPHEN [Concomitant]
     Active Substance: ACETAMINOPHEN\HYDROCODONE BITARTRATE
  34. IBUPROFEN [Concomitant]
     Active Substance: IBUPROFEN
  35. KETOPROFEN [Concomitant]
     Active Substance: KETOPROFEN
  36. LAMICTAL [Concomitant]
     Active Substance: LAMOTRIGINE
  37. LEVOFLOXACIN [Concomitant]
     Active Substance: LEVOFLOXACIN
  38. LEXIVA [Concomitant]
     Active Substance: FOSAMPRENAVIR CALCIUM
  39. MELOXICAM [Concomitant]
     Active Substance: MELOXICAM
  40. METAMUCIL THERAPY FOR REGULARITY [Concomitant]
     Active Substance: PSYLLIUM HUSK
  41. METOPROLOL TARTRATE [Concomitant]
     Active Substance: METOPROLOL TARTRATE
  42. METRONIDAZOLE [Concomitant]
     Active Substance: METRONIDAZOLE
  43. NABUMETONE [Concomitant]
     Active Substance: NABUMETONE
  44. NAPROXEN [Concomitant]
     Active Substance: NAPROXEN
  45. OLANZAPINE [Concomitant]
     Active Substance: OLANZAPINE
  46. OXYCODONE AND ACETAMINOPHEN [Concomitant]
     Active Substance: ACETAMINOPHEN\OXYCODONE HYDROCHLORIDE
  47. PRAVASTATIN [Concomitant]
     Active Substance: PRAVASTATIN
  48. QUETIAPINE FUMARATE [Concomitant]
     Active Substance: QUETIAPINE FUMARATE
  49. RALTEGRAVIR [Concomitant]
     Active Substance: RALTEGRAVIR
  50. RISPERIDONE [Concomitant]
     Active Substance: RISPERIDONE
  51. TENOFOVIR [Concomitant]
     Active Substance: TENOFOVIR
  52. TIZANIDINE HYDROCHLORIDE [Concomitant]
     Active Substance: TIZANIDINE HYDROCHLORIDE
  53. TRAMADOL [Concomitant]
     Active Substance: TRAMADOL
  54. VALPROIC ACID [Concomitant]
     Active Substance: VALPROIC ACID
  55. VITAMIN D2 [Concomitant]
     Active Substance: ERGOCALCIFEROL
  56. ZYPREXA [Concomitant]
     Active Substance: OLANZAPINE
  57. MINERALS\VITAMINS [Concomitant]
     Active Substance: MINERALS\VITAMINS

REACTIONS (8)
  - Osteoporosis [Recovered/Resolved]
  - Osteonecrosis [Not Recovered/Not Resolved]
  - Anhedonia [Unknown]
  - Emotional distress [Recovered/Resolved]
  - Pain [Recovered/Resolved]
  - Anxiety [Unknown]
  - Osteoarthritis [Not Recovered/Not Resolved]
  - Bone loss [Unknown]

NARRATIVE: CASE EVENT DATE: 20090101
